FAERS Safety Report 6010302-3 (Version None)
Quarter: 2008Q4

REPORT INFORMATION
  Report Type: 
  Country: None (occurrence: None)
  Receive Date: 20081218
  Receipt Date: 20080514
  Transmission Date: 20090506
  Serious: No
  Sender: FDA-Public Use
  Company Number: A0727911A

PATIENT
  Sex: Female

DRUGS (1)
  1. FLONASE [Suspect]
     Indication: MULTIPLE ALLERGIES
     Route: 045

REACTIONS (1)
  - ILL-DEFINED DISORDER [None]
